FAERS Safety Report 8283206-3 (Version None)
Quarter: 2012Q2

REPORT INFORMATION
  Report Type: 
  Country: None (occurrence: None)
  Receive Date: 20120413
  Receipt Date: 20120402
  Transmission Date: 20120825
  Serious: Yes (Disabling)
  Sender: FDA-Public Use
  Company Number: US-MERCK-1204USA00565

PATIENT
  Sex: Male

DRUGS (3)
  1. BONIVA [Suspect]
     Route: 065
  2. FOSAMAX [Suspect]
     Route: 048
  3. ALENDRONATE SODIUM [Suspect]
     Route: 065

REACTIONS (5)
  - FEMUR FRACTURE [None]
  - BONE DISORDER [None]
  - MULTIPLE INJURIES [None]
  - PAIN [None]
  - UNEVALUABLE EVENT [None]
